FAERS Safety Report 15420110 (Version 2)
Quarter: 2018Q4

REPORT INFORMATION
  Report Type: Report from Study
  Country: US (occurrence: US)
  Receive Date: 20180924
  Receipt Date: 20181205
  Transmission Date: 20190204
  Serious: Yes (Other)
  Sender: FDA-Public Use
  Company Number: PHEH2018US039425

PATIENT
  Sex: Female

DRUGS (3)
  1. COSENTYX [Suspect]
     Active Substance: SECUKINUMAB
     Dosage: 300 MG, Q2W
     Route: 058
  2. MELOXICAM. [Suspect]
     Active Substance: MELOXICAM
     Indication: NASOPHARYNGITIS
     Route: 065
  3. COSENTYX [Suspect]
     Active Substance: SECUKINUMAB
     Indication: PSORIATIC ARTHROPATHY
     Dosage: 150 MG, Q2W
     Route: 058

REACTIONS (8)
  - Drug ineffective [Unknown]
  - Pneumonia [Unknown]
  - Bronchitis [Unknown]
  - Inappropriate schedule of product administration [Unknown]
  - Pain in extremity [Unknown]
  - Psoriasis [Unknown]
  - Somnolence [Unknown]
  - Nasopharyngitis [Unknown]
